FAERS Safety Report 8482716-3 (Version None)
Quarter: 2012Q3

REPORT INFORMATION
  Report Type: 
  Country: None (occurrence: None)
  Receive Date: 20120702
  Receipt Date: 20120626
  Transmission Date: 20120928
  Serious: No
  Sender: FDA-Public Use
  Company Number: US-PFIZER INC-2012154817

PATIENT
  Sex: Female
  Weight: 62.585 kg

DRUGS (9)
  1. CARDIZEM CD [Suspect]
     Dosage: 180 MG, DAILY
  2. LEVOTHROID [Suspect]
     Indication: THYROID DISORDER
     Dosage: 0.075 MG, DAILY
  3. ASPIRIN [Suspect]
     Indication: CARDIAC FAILURE CONGESTIVE
     Dosage: 81 MG, DAILY
  4. XANAX [Suspect]
     Indication: ANXIETY
     Dosage: 0.25 MG, AS NEEDED
  5. ATROVENT [Suspect]
     Indication: CHRONIC OBSTRUCTIVE PULMONARY DISEASE
     Dosage: 0.5 MG, AS NEEDED
  6. BUDESONIDE [Suspect]
     Indication: CHRONIC OBSTRUCTIVE PULMONARY DISEASE
     Dosage: 0.25 MG, 2X/DAY
  7. ZYVOX [Suspect]
     Indication: PNEUMONIA
     Dosage: 600 MG, EVERY 12 HOURS
     Dates: start: 20120617
  8. OXYGEN [Concomitant]
     Indication: CHRONIC OBSTRUCTIVE PULMONARY DISEASE
     Dosage: UNK
  9. CELEXA [Suspect]
     Indication: DEPRESSION
     Dosage: 20 MG, DAILY

REACTIONS (1)
  - PLATELET COUNT DECREASED [None]
